FAERS Safety Report 25597417 (Version 1)
Quarter: 2025Q3

REPORT INFORMATION
  Report Type: Spontaneous
  Country: US (occurrence: None)
  Receive Date: 20250723
  Receipt Date: 20250723
  Transmission Date: 20251021
  Serious: Yes (Hospitalization)
  Sender: FDA-CTU
  Company Number: None

PATIENT
  Sex: Female

DRUGS (11)
  1. HUMIRA [Suspect]
     Active Substance: ADALIMUMAB
     Indication: Psoriatic arthropathy
     Dates: start: 20221202
  2. ALBUTEROL SULFATE [Concomitant]
     Active Substance: ALBUTEROL SULFATE
  3. CALCITRIOL [Concomitant]
     Active Substance: CALCITRIOL
  4. CLOTRIMAZOLE CRE 1% [Concomitant]
  5. D2000 ULTRA STRENGTH [Concomitant]
  6. DESONIDE CRE 0.05% [Concomitant]
  7. ELIOUIS TAB 5MG [Concomitant]
  8. ENTRESTO TAB 97-103MG [Concomitant]
  9. FLOVENT DISK AER 250MCG [Concomitant]
  10. FUROSEMIDE [Concomitant]
     Active Substance: FUROSEMIDE
  11. ACETAMINOPHEN\HYDROCODONE [Concomitant]
     Active Substance: ACETAMINOPHEN\HYDROCODONE

REACTIONS (6)
  - Therapy non-responder [None]
  - Rash [None]
  - Discomfort [None]
  - Loss of personal independence in daily activities [None]
  - Pain [None]
  - Therapy interrupted [None]
